FAERS Safety Report 23212605 (Version 1)
Quarter: 2023Q4

REPORT INFORMATION
  Report Type: Spontaneous
  Country: US (occurrence: None)
  Receive Date: 20231121
  Receipt Date: 20231121
  Transmission Date: 20240109
  Serious: Yes (Hospitalization)
  Sender: FDA-Public Use
  Company Number: None

PATIENT
  Age: 62 Year
  Sex: Female

DRUGS (1)
  1. ENBREL [Suspect]
     Active Substance: ETANERCEPT
     Indication: Crohn^s disease
     Dosage: FREQUENCY : WEEKLY;?
     Route: 058

REACTIONS (3)
  - Abdominal pain [None]
  - Kidney infection [None]
  - Gastrointestinal disorder [None]
